FAERS Safety Report 22068375 (Version 4)
Quarter: 2023Q2

REPORT INFORMATION
  Report Type: Spontaneous
  Country: HU (occurrence: HU)
  Receive Date: 20230307
  Receipt Date: 20230626
  Transmission Date: 20230721
  Serious: Yes (Other)
  Sender: FDA-Public Use
  Company Number: HU-002147023-NVSC2023HU050948

PATIENT
  Age: 33 Year
  Sex: Female

DRUGS (29)
  1. METOPROLOL [Suspect]
     Active Substance: METOPROLOL
     Indication: Gestational hypertension
     Dosage: 25 MG
     Route: 065
  2. METOPROLOL [Suspect]
     Active Substance: METOPROLOL
     Dosage: 25 MG, TID (75 MG, QD)
     Route: 065
  3. METOPROLOL [Suspect]
     Active Substance: METOPROLOL
     Dosage: 25 MG, BID (50 MG, QD)
     Route: 065
  4. PANTOTHENIC ACID [Suspect]
     Active Substance: PANTOTHENIC ACID
     Indication: Supplementation therapy
     Dosage: UNK, QD (DAILY)
     Route: 065
  5. VITAMIN B1 [Suspect]
     Active Substance: THIAMINE HYDROCHLORIDE
     Indication: Supplementation therapy
     Dosage: UNK, QD (DAILY)
     Route: 065
  6. NIACIN [Suspect]
     Active Substance: NIACIN
     Indication: Supplementation therapy
     Dosage: UNK, QD
     Route: 065
  7. VITAMIN C [Suspect]
     Active Substance: ASCORBIC ACID
     Indication: Supplementation therapy
     Dosage: UNK, QD (DAILY)
     Route: 065
  8. VERAPAMIL [Suspect]
     Active Substance: VERAPAMIL HYDROCHLORIDE
     Indication: Gestational hypertension
     Dosage: 40 MG, BID (80 MG, QD)
     Route: 065
  9. LEVOMEFOLATE CALCIUM [Suspect]
     Active Substance: LEVOMEFOLATE CALCIUM
     Indication: Supplementation therapy
     Dosage: UNK, QD
     Route: 065
  10. DEXAMETHASONE [Suspect]
     Active Substance: DEXAMETHASONE
     Indication: Prophylaxis
     Dosage: 6 MG, QID (24MG, QD)
     Route: 030
  11. DEXAMETHASONE [Suspect]
     Active Substance: DEXAMETHASONE
     Indication: Maternal therapy to enhance foetal lung maturity
  12. TACROLIMUS [Suspect]
     Active Substance: TACROLIMUS
     Indication: Renal transplant
     Dosage: 4.5 MG, QD
     Route: 065
  13. TACROLIMUS [Suspect]
     Active Substance: TACROLIMUS
     Indication: Immunosuppressant drug therapy
  14. PREDNISOLONE [Suspect]
     Active Substance: PREDNISOLONE
     Indication: Renal transplant
     Dosage: 7.5 MG, QD
     Route: 065
  15. PREDNISOLONE [Suspect]
     Active Substance: PREDNISOLONE
     Indication: Immunosuppressant drug therapy
  16. ENOXAPARIN SODIUM [Suspect]
     Active Substance: ENOXAPARIN SODIUM
     Indication: Product used for unknown indication
     Dosage: 6 ML
     Route: 058
  17. VITAMIN B2 [Suspect]
     Active Substance: RIBOFLAVIN
     Indication: Supplementation therapy
     Dosage: UNK, QD
     Route: 065
  18. IODINE [Suspect]
     Active Substance: IODINE
     Indication: Supplementation therapy
     Dosage: UNK, QD
     Route: 065
  19. VITAMIN D3 [Suspect]
     Active Substance: CHOLECALCIFEROL
     Indication: Supplementation therapy
     Dosage: UNK, QD (DAILY)
     Route: 065
  20. DOCONEXENT [Suspect]
     Active Substance: DOCONEXENT
     Indication: Supplementation therapy
     Dosage: UNK, QD (DAILY)
     Route: 065
  21. NIFEDIPINE [Suspect]
     Active Substance: NIFEDIPINE
     Indication: Gestational hypertension
     Dosage: 20 MG, BID (40 MG, QD)
     Route: 065
  22. METHYLDOPA [Suspect]
     Active Substance: METHYLDOPA
     Indication: Gestational hypertension
     Dosage: 250 MG, TID (750 MG, QD)
     Route: 065
  23. METHYLDOPA [Suspect]
     Active Substance: METHYLDOPA
     Dosage: 250 MG, QID (1000 MG, QD)
     Route: 065
  24. BIOTIN [Suspect]
     Active Substance: BIOTIN
     Indication: Supplementation therapy
     Dosage: UNK, QD (DAILY)
     Route: 065
  25. FOLIC ACID [Suspect]
     Active Substance: FOLIC ACID
     Indication: Supplementation therapy
     Dosage: UNK, QD (DAILY)
     Route: 065
  26. VITAMIN B12 [Suspect]
     Active Substance: CYANOCOBALAMIN
     Indication: Supplementation therapy
     Dosage: UNK, QD
     Route: 065
  27. VITAMIN B6 [Suspect]
     Active Substance: PYRIDOXINE HYDROCHLORIDE
     Indication: Supplementation therapy
     Dosage: UNK, QD
     Route: 065
  28. ASPIRIN [Suspect]
     Active Substance: ASPIRIN
     Indication: Product used for unknown indication
     Dosage: 100 MG, QD
     Route: 065
  29. VITAMIN E\VITAMINS [Suspect]
     Active Substance: .ALPHA.-TOCOPHEROL\VITAMINS
     Indication: Supplementation therapy
     Dosage: UNK, QD (DAILY)
     Route: 065

REACTIONS (2)
  - Premature delivery [Unknown]
  - Maternal exposure during pregnancy [Unknown]
